FAERS Safety Report 8091535-1 (Version None)
Quarter: 2012Q1

REPORT INFORMATION
  Report Type: 
  Country: None (occurrence: None)
  Receive Date: 20120129
  Receipt Date: 20110911
  Transmission Date: 20120608
  Serious: No
  Sender: FDA-Public Use
  Company Number: US-ABBOTT-11P-163-0853546-00

PATIENT
  Age: 51 Year
  Sex: Female

DRUGS (3)
  1. HUMIRA [Suspect]
     Indication: RHEUMATOID ARTHRITIS
     Dates: start: 20110501
  2. CALCIUM [Concomitant]
     Indication: MINERAL SUPPLEMENTATION
  3. FOSAMAX [Concomitant]
     Indication: OSTEOPENIA

REACTIONS (2)
  - INCREASED TENDENCY TO BRUISE [None]
  - CONTUSION [None]
